FAERS Safety Report 4935232-7 (Version None)
Quarter: 2006Q1

REPORT INFORMATION
  Report Type: 
  Country: None (occurrence: None)
  Receive Date: 20060302
  Receipt Date: 20060224
  Transmission Date: 20060701
  Serious: Yes (Death)
  Sender: FDA-Public Use
  Company Number: USA-2006-0023692

PATIENT
  Age: 49 Year
  Sex: Female

DRUGS (2)
  1. OXYCONTIN [Suspect]
  2. OXYCODONE HCL [Suspect]

REACTIONS (1)
  - DEATH [None]
